FAERS Safety Report 4849200-7 (Version None)
Quarter: 2005Q4

REPORT INFORMATION
  Report Type: 
  Country: None (occurrence: None)
  Receive Date: 20051209
  Receipt Date: 20050916
  Transmission Date: 20060501
  Serious: Yes (Hospitalization)
  Sender: FDA-Public Use
  Company Number: US-MERCK-0509USA02654

PATIENT
  Age: 55 Year
  Sex: Male
  Weight: 91 kg

DRUGS (15)
  1. VIOXX [Suspect]
     Indication: ARTHRITIS
     Route: 048
     Dates: start: 20001012, end: 20040701
  2. ASPIRIN [Concomitant]
     Indication: PROPHYLAXIS
     Route: 065
     Dates: start: 20020101
  3. LOTENSIN [Concomitant]
     Indication: HYPERTENSION
     Route: 065
     Dates: start: 19950101, end: 20040701
  4. LOTENSIN [Concomitant]
     Indication: CARDIAC DISORDER
     Route: 065
     Dates: start: 19950101, end: 20040701
  5. FOLIC ACID [Concomitant]
     Indication: PROPHYLAXIS
     Route: 065
     Dates: start: 20020101
  6. PEPCID [Concomitant]
     Indication: CARDIAC DISORDER
     Route: 065
     Dates: start: 20040607, end: 20050722
  7. INDERAL [Concomitant]
     Indication: HYPERTENSION
     Route: 065
     Dates: start: 20020101
  8. HYDRODIURIL [Concomitant]
     Indication: OEDEMA PERIPHERAL
     Route: 065
     Dates: start: 20020101
  9. CALCIUM CARBONATE [Concomitant]
     Route: 065
  10. NORVASC [Concomitant]
     Route: 065
     Dates: start: 20040401
  11. MOBIC [Concomitant]
     Indication: PAIN
     Route: 065
     Dates: start: 19940101, end: 20050622
  12. PROTONIX [Concomitant]
     Indication: DYSPEPSIA
     Route: 065
     Dates: start: 20020101
  13. NITRO [Concomitant]
     Indication: CARDIAC DISORDER
     Route: 065
     Dates: start: 20010101
  14. TYLENOL W/ CODEINE NO. 3 [Concomitant]
     Indication: PAIN
     Route: 065
     Dates: start: 20000101
  15. METHOTREXATE [Concomitant]
     Route: 065

REACTIONS (8)
  - ARTHROPATHY [None]
  - CARDIOVASCULAR DISORDER [None]
  - DYSPEPSIA [None]
  - HYPOTHYROIDISM [None]
  - MUSCULAR WEAKNESS [None]
  - MYOCARDIAL INFARCTION [None]
  - OEDEMA PERIPHERAL [None]
  - THYROID DISORDER [None]
